FAERS Safety Report 10211725 (Version 2)
Quarter: 2014Q2

REPORT INFORMATION
  Report Type: Spontaneous
  Country: US (occurrence: US)
  Receive Date: 20140602
  Receipt Date: 20140602
  Transmission Date: 20141212
  Serious: Yes (Other)
  Sender: FDA-Public Use
  Company Number: CHPA2014US007022

PATIENT
  Age: 28 Year
  Sex: Male

DRUGS (2)
  1. VOLTAREN GEL [Suspect]
     Indication: PAIN
     Dosage: 4 G, QID
     Dates: start: 201402
  2. VOLTAREN GEL [Suspect]
     Indication: OFF LABEL USE

REACTIONS (9)
  - Back pain [Unknown]
  - Paraesthesia [Unknown]
  - Feeling hot [Unknown]
  - Disturbance in sexual arousal [Unknown]
  - Hyperhidrosis [Unknown]
  - Feeling abnormal [Unknown]
  - Accidental exposure to product [Unknown]
  - Drug administered at inappropriate site [Unknown]
  - Therapeutic response changed [Unknown]
